FAERS Safety Report 9922644 (Version 1)
Quarter: 2014Q1

REPORT INFORMATION
  Report Type: Spontaneous
  Country: DK (occurrence: AU)
  Receive Date: 20140225
  Receipt Date: 20140225
  Transmission Date: 20141002
  Serious: Yes (Other)
  Sender: FDA-Public Use
  Company Number: AU-FRI-1000054527

PATIENT
  Sex: Female
  Weight: 70 kg

DRUGS (4)
  1. CITALOPRAM [Suspect]
     Indication: DEPRESSION
     Dosage: 20 MG
     Route: 048
  2. CITALOPRAM [Suspect]
     Dosage: 10 MG
     Route: 048
  3. CITALOPRAM [Suspect]
     Dosage: 20 MG
     Route: 048
  4. CLIMARA [Concomitant]

REACTIONS (5)
  - Dizziness [Recovered/Resolved]
  - Disorientation [Recovered/Resolved]
  - Tearfulness [Recovered/Resolved]
  - Headache [Recovered/Resolved]
  - Social avoidant behaviour [Recovered/Resolved]
